FAERS Safety Report 8171808-4 (Version None)
Quarter: 2012Q1

REPORT INFORMATION
  Report Type: 
  Country: None (occurrence: None)
  Receive Date: 20120228
  Receipt Date: 20120217
  Transmission Date: 20120608
  Serious: Yes (Life-Threatening, Hospitalization)
  Sender: FDA-Public Use
  Company Number: FR-GLAXOSMITHKLINE-B0782326A

PATIENT
  Sex: Female

DRUGS (8)
  1. IFOSFAMIDE [Suspect]
     Indication: ENDOMETRIAL SARCOMA
     Dosage: 4160MG PER DAY
     Route: 042
     Dates: start: 20111205, end: 20111206
  2. DURAGESIC-100 [Concomitant]
  3. LYRICA [Concomitant]
     Route: 065
  4. ZOFRAN [Suspect]
     Indication: PRODUCT USED FOR UNKNOWN INDICATION
     Dosage: 8MG PER DAY
     Route: 042
     Dates: start: 20111205, end: 20111206
  5. MESNA [Suspect]
     Indication: ENDOMETRIAL SARCOMA
     Dosage: 1300MG THREE TIMES PER DAY
     Route: 042
     Dates: start: 20111205, end: 20111206
  6. EMEND [Suspect]
     Indication: ENDOMETRIAL SARCOMA
     Dosage: 80MG PER DAY
     Route: 048
     Dates: start: 20111205, end: 20111206
  7. SOLU-MEDROL [Suspect]
     Indication: PRODUCT USED FOR UNKNOWN INDICATION
     Dosage: 40MG PER DAY
     Route: 042
     Dates: start: 20111205, end: 20111206
  8. OXYCODONE HCL [Concomitant]
     Route: 065

REACTIONS (7)
  - TACHYPNOEA [None]
  - RENAL FAILURE [None]
  - ENCEPHALOPATHY [None]
  - URINARY RETENTION [None]
  - SEPTIC SHOCK [None]
  - LACTIC ACIDOSIS [None]
  - HYPOVOLAEMIC SHOCK [None]
